FAERS Safety Report 7803061-2 (Version None)
Quarter: 2011Q4

REPORT INFORMATION
  Report Type: 
  Country: None (occurrence: None)
  Receive Date: 20111005
  Receipt Date: 20110923
  Transmission Date: 20120403
  Serious: Yes (Other)
  Sender: FDA-Public Use
  Company Number: 2011MA014495

PATIENT
  Sex: Female

DRUGS (2)
  1. TERBUTALINE [Concomitant]
  2. CETIRIZINE HCL [Suspect]
     Indication: HYPERSENSITIVITY
     Dosage: 10 MG;QD;PO
     Route: 048
     Dates: start: 20061116, end: 20110620

REACTIONS (1)
  - EPILEPSY [None]
